FAERS Safety Report 6203557-3 (Version None)
Quarter: 2009Q2

REPORT INFORMATION
  Report Type: 
  Country: None (occurrence: None)
  Receive Date: 20090501
  Receipt Date: 20071022
  Transmission Date: 20091009
  Serious: Yes (Other)
  Sender: FDA-Public Use
  Company Number: 2007BH009132

PATIENT
  Age: 17 Year

DRUGS (1)
  1. ANTIHEMOPHILIC FACTOR (HUMAN) [Suspect]
     Indication: HAEMOPHILIA
     Dosage: 12 TREATMENTS; EVERY MO

REACTIONS (1)
  - FACTOR VIII INHIBITION [None]
